FAERS Safety Report 6057899-5 (Version None)
Quarter: 2009Q1

REPORT INFORMATION
  Report Type: 
  Country: None (occurrence: None)
  Receive Date: 20090126
  Receipt Date: 20090116
  Transmission Date: 20090719
  Serious: Yes (Hospitalization)
  Sender: FDA-Public Use
  Company Number: 1-17310572

PATIENT
  Age: 56 Year
  Sex: Female
  Weight: 54.4316 kg

DRUGS (1)
  1. WARFARIN SODIUM           TABELTS USP 10MG [Suspect]
     Indication: SURGERY
     Dosage: 10 MG, DAILY, ORAL
     Route: 048
     Dates: start: 20080925, end: 20090101

REACTIONS (4)
  - DRUG INEFFECTIVE [None]
  - DRUG LEVEL DECREASED [None]
  - EMBOLIC STROKE [None]
  - PRODUCT QUALITY ISSUE [None]
